FAERS Safety Report 6088030-8 (Version None)
Quarter: 2009Q1

REPORT INFORMATION
  Report Type: 
  Country: None (occurrence: None)
  Receive Date: 20090217
  Receipt Date: 20090211
  Transmission Date: 20090719
  Serious: Yes (Other)
  Sender: FDA-Public Use
  Company Number: A0768123A

PATIENT
  Sex: Female

DRUGS (1)
  1. SODIUM FLOURIDE (FORMULATION UNKNOWN) (SODIUM FLOURIDE) [Suspect]
     Indication: DENTAL CLEANING
     Dosage: DENTAL
     Route: 004
     Dates: start: 20090210, end: 20090211

REACTIONS (2)
  - ASTHMA [None]
  - HYPERSENSITIVITY [None]
